FAERS Safety Report 21212536 (Version 1)
Quarter: 2022Q3

REPORT INFORMATION
  Report Type: Spontaneous
  Country: US (occurrence: None)
  Receive Date: 20220814
  Receipt Date: 20220814
  Transmission Date: 20221026
  Serious: Yes (Life-Threatening, Hospitalization, Disabling)
  Sender: FDA-Public Use
  Company Number: None

PATIENT
  Age: 64 Year
  Sex: Female
  Weight: 55 kg

DRUGS (1)
  1. LISINOPRIL [Suspect]
     Active Substance: LISINOPRIL
     Indication: Accidental exposure to product
     Dosage: OTHER FREQUENCY : ONCE;?
     Route: 048

REACTIONS (5)
  - Angioedema [None]
  - Endotracheal intubation complication [None]
  - Drug hypersensitivity [None]
  - Tracheostomy malfunction [None]
  - Medical device discomfort [None]

NARRATIVE: CASE EVENT DATE: 20220611
